FAERS Safety Report 6026357-6 (Version None)
Quarter: 2009Q1

REPORT INFORMATION
  Report Type: 
  Country: None (occurrence: None)
  Receive Date: 20090102
  Receipt Date: 20081222
  Transmission Date: 20090719
  Serious: Yes (Other)
  Sender: FDA-Public Use
  Company Number: PHHY2008CN31234

PATIENT

DRUGS (2)
  1. MIACALCIN [Suspect]
     Indication: OSTEOPOROSIS
     Dosage: UNK
     Route: 030
     Dates: start: 20081209
  2. MIACALCIN [Suspect]
     Indication: COMPRESSION FRACTURE

REACTIONS (3)
  - GASTROINTESTINAL DISORDER [None]
  - HAEMATEMESIS [None]
  - OCCULT BLOOD POSITIVE [None]
